FAERS Safety Report 4363382-5 (Version None)
Quarter: 2004Q2

REPORT INFORMATION
  Report Type: 
  Country: None (occurrence: None)
  Receive Date: 20040518
  Receipt Date: 20040510
  Transmission Date: 20050107
  Serious: Yes (Hospitalization, Other)
  Sender: FDA-Public Use
  Company Number: 2004206781NZ

PATIENT
  Age: 75 Year
  Sex: Female
  Weight: 84 kg

DRUGS (5)
  1. CELEBREX [Suspect]
     Indication: OSTEOARTHRITIS
     Dosage: 200 MG, QD, ORAL
     Route: 048
     Dates: start: 20020204, end: 20020320
  2. TRAMADOL HCL [Concomitant]
  3. ATACAND [Concomitant]
  4. FLIXOTIDE (FLUTICASONE PROPIONATE) [Concomitant]
  5. VENTOLIN [Concomitant]

REACTIONS (3)
  - DUODENAL ULCER [None]
  - GASTRIC ULCER [None]
  - GASTROINTESTINAL HAEMORRHAGE [None]
